FAERS Safety Report 6249708-6 (Version None)
Quarter: 2009Q2

REPORT INFORMATION
  Report Type: 
  Country: None (occurrence: None)
  Receive Date: 20090629
  Receipt Date: 20090619
  Transmission Date: 20091009
  Serious: Yes (Hospitalization)
  Sender: FDA-Public Use
  Company Number: JP-BRISTOL-MYERS SQUIBB COMPANY-14521223

PATIENT
  Age: 51 Year
  Sex: Female
  Weight: 54 kg

DRUGS (10)
  1. ERBITUX [Suspect]
     Indication: RECTAL CANCER
     Dosage: 350MG FROM 22JAN AND RECENT INFUSION WAS ON 5FEB09.
     Route: 042
     Dates: start: 20090109, end: 20090109
  2. IRINOTECAN HCL [Suspect]
     Indication: RECTAL CANCER
     Dosage: REDUCED TO 170MG FROM 29JAN09.
     Route: 042
     Dates: start: 20090109, end: 20090109
  3. LUVOX [Suspect]
     Indication: DEPRESSION
     Dosage: FORM-TABS 21NOV06-15JAN09: 75MG (786D) 16JAN09-20FEB09: 150MG (35D) 21FEB09-UNK: 75MG
     Route: 048
     Dates: start: 20061121, end: 20090115
  4. DIPHENHYDRAMINE HCL [Concomitant]
     Indication: PREMEDICATION
     Route: 048
     Dates: start: 20090109
  5. DECADRON [Concomitant]
     Indication: PREMEDICATION
     Route: 042
     Dates: start: 20090109
  6. GRAN [Concomitant]
     Route: 058
     Dates: start: 20090116, end: 20090120
  7. KYTRIL [Concomitant]
     Indication: ANTIEMETIC SUPPORTIVE CARE
  8. PREDNISOLONE [Concomitant]
     Route: 048
     Dates: start: 20071116, end: 20090101
  9. TOFRANIL [Concomitant]
     Indication: DEPRESSION
     Dosage: TABLET
     Route: 048
  10. LEXOTAN [Concomitant]
     Indication: DEPRESSION
     Dosage: TABLET
     Route: 048

REACTIONS (2)
  - FEBRILE NEUTROPENIA [None]
  - LIVER DISORDER [None]
